FAERS Safety Report 13237871 (Version 1)
Quarter: 2017Q1

REPORT INFORMATION
  Report Type: Spontaneous
  Country: US (occurrence: US)
  Receive Date: 20170216
  Receipt Date: 20170216
  Transmission Date: 20170428
  Serious: No
  Sender: FDA-Public Use
  Company Number: US-009507513-1702USA003156

PATIENT
  Sex: Male

DRUGS (2)
  1. MOMETASONE FUROATE. [Suspect]
     Active Substance: MOMETASONE FUROATE
  2. ASMANEX HFA [Suspect]
     Active Substance: MOMETASONE FUROATE

REACTIONS (1)
  - Drug ineffective [Unknown]
